FAERS Safety Report 7389996-6 (Version None)
Quarter: 2011Q2

REPORT INFORMATION
  Report Type: 
  Country: None (occurrence: None)
  Receive Date: 20110401
  Receipt Date: 20110318
  Transmission Date: 20111010
  Serious: Yes (Other)
  Sender: FDA-Public Use
  Company Number: FR-GENENTECH-315890

PATIENT
  Sex: Male

DRUGS (12)
  1. RITUXIMAB [Suspect]
     Dosage: 920 MG, QAM
     Route: 041
     Dates: start: 20090107, end: 20090107
  2. RITUXIMAB [Suspect]
     Dosage: 890 MG, QAM
     Route: 041
     Dates: start: 20100205, end: 20100205
  3. PREVISCAN [Concomitant]
     Indication: PRODUCT USED FOR UNKNOWN INDICATION
     Dosage: UNK
  4. RAMIPRIL [Concomitant]
     Indication: PRODUCT USED FOR UNKNOWN INDICATION
     Dosage: UNK
  5. SYMBICORT [Concomitant]
     Indication: PRODUCT USED FOR UNKNOWN INDICATION
     Dosage: UNK
  6. KENZEN [Concomitant]
     Indication: PRODUCT USED FOR UNKNOWN INDICATION
     Dosage: UNK
  7. FLUDARA [Suspect]
     Indication: PRODUCT USED FOR UNKNOWN INDICATION
     Dosage: UNK
     Route: 065
     Dates: start: 20081224, end: 20081226
  8. AIROMIR [Concomitant]
     Indication: PRODUCT USED FOR UNKNOWN INDICATION
     Dosage: UNK
  9. ENDOXAN [Suspect]
     Indication: CHRONIC LYMPHOCYTIC LEUKAEMIA
     Dosage: 450 MG, QAM
     Route: 048
     Dates: start: 20081127, end: 20081228
  10. RITUXIMAB [Suspect]
     Indication: B-CELL SMALL LYMPHOCYTIC LYMPHOMA
     Dosage: 920 MG, QAM
     Route: 041
     Dates: start: 20081026, end: 20090107
  11. RITUXIMAB [Suspect]
     Dosage: UNK
     Route: 041
     Dates: start: 20090213
  12. DAFALGAN [Concomitant]
     Indication: PRODUCT USED FOR UNKNOWN INDICATION
     Dosage: 1 DF, UNK

REACTIONS (1)
  - SQUAMOUS CELL CARCINOMA [None]
